FAERS Safety Report 5958699-4 (Version None)
Quarter: 2008Q4

REPORT INFORMATION
  Report Type: 
  Country: None (occurrence: None)
  Receive Date: 20081119
  Receipt Date: 20081111
  Transmission Date: 20090506
  Serious: Yes (Hospitalization, Disabling, Other)
  Sender: FDA-Public Use
  Company Number: US-PFIZER INC-2008095226

PATIENT
  Age: 62 Year
  Sex: Female
  Weight: 95 kg

DRUGS (1)
  1. SU-011,248 [Suspect]
     Indication: BREAST CANCER METASTATIC
     Route: 048
     Dates: start: 20080514

REACTIONS (2)
  - DYSPNOEA [None]
  - PLEURAL EFFUSION [None]
